FAERS Safety Report 9143939 (Version 1)
Quarter: 2013Q1

REPORT INFORMATION
  Report Type: Spontaneous
  Country: US (occurrence: US)
  Receive Date: 20130306
  Receipt Date: 20130306
  Transmission Date: 20140127
  Serious: No
  Sender: FDA-Public Use
  Company Number: US-ASTRAZENECA-2013SE11823

PATIENT
  Age: 56 Year
  Sex: Male
  Weight: 108.9 kg

DRUGS (10)
  1. SYMBICORT PMDI [Suspect]
     Indication: CHRONIC OBSTRUCTIVE PULMONARY DISEASE
     Dosage: 160 MCG, 2 PUFFS, TWO TIMES A DAY
     Route: 055
     Dates: start: 2009
  2. SYMBICORT PMDI [Suspect]
     Indication: EMPHYSEMA
     Dosage: 160 MCG, 2 PUFFS, TWO TIMES A DAY
     Route: 055
     Dates: start: 2009
  3. CRESTOR [Suspect]
     Indication: BLOOD CHOLESTEROL ABNORMAL
     Route: 048
     Dates: start: 2012
  4. SPIRIVA [Suspect]
     Indication: EMPHYSEMA
     Route: 055
     Dates: start: 2009
  5. PROAIR [Suspect]
     Indication: RESPIRATORY DISORDER
     Dosage: AS REQUIRED
     Route: 055
     Dates: start: 2009
  6. LORTAB [Suspect]
     Indication: BACK PAIN
     Dosage: AS REQUIRED
     Route: 048
     Dates: start: 2009
  7. XANAX [Suspect]
     Indication: ANXIETY DISORDER DUE TO A GENERAL MEDICAL CONDITION
     Route: 048
     Dates: start: 2009
  8. COMBIVENT [Concomitant]
     Indication: EMPHYSEMA
     Route: 055
     Dates: end: 2009
  9. ASPIRIN [Concomitant]
     Indication: HEADACHE
     Dosage: AS REQUIRED
     Route: 048
  10. PURPLE DICSUS INHALER [Concomitant]

REACTIONS (9)
  - Skin ulcer [Unknown]
  - Increased tendency to bruise [Unknown]
  - Blood cholesterol abnormal [Unknown]
  - Scar [Unknown]
  - Skin disorder [Unknown]
  - Weight increased [Unknown]
  - Anxiety [Unknown]
  - Dyspnoea [Unknown]
  - Headache [Unknown]
